FAERS Safety Report 12260677 (Version 2)
Quarter: 2016Q2

REPORT INFORMATION
  Report Type: Spontaneous
  Country: GB (occurrence: GB)
  Receive Date: 20160412
  Receipt Date: 20160412
  Transmission Date: 20160815
  Serious: Yes (Other)
  Sender: FDA-Public Use
  Company Number: GB-WATSON-2016-07320

PATIENT
  Sex: Male

DRUGS (5)
  1. DOXORUBICIN (UNKNOWN) [Suspect]
     Active Substance: DOXORUBICIN
     Indication: MANTLE CELL LYMPHOMA
     Dosage: UNK (DOSAGE FORM: UNSPECIFIED)
     Route: 065
  2. RITUXIMAB [Suspect]
     Active Substance: RITUXIMAB
     Indication: MANTLE CELL LYMPHOMA
     Dosage: UNK (DOSAGE FORM: UNSPECIFIED)
     Route: 065
  3. VELCADE [Suspect]
     Active Substance: BORTEZOMIB
     Indication: MANTLE CELL LYMPHOMA
     Dosage: 1.3 MG, CYCLICAL (DOSAGE FORM: LYOPHILIZED POWDER, CYCLE 4, DOSE ON DAY 8)
     Route: 065
  4. PREDNISONE (UNKNOWN) [Suspect]
     Active Substance: PREDNISONE
     Indication: MANTLE CELL LYMPHOMA
     Dosage: UNK (DOSAGE FORM: UNSPECIFIED)
     Route: 065
  5. CYCLOPHOSPHAMIDE. [Suspect]
     Active Substance: CYCLOPHOSPHAMIDE
     Indication: MANTLE CELL LYMPHOMA
     Dosage: UNK (DOSAGE FORM: UNSPECIFIED)
     Route: 065

REACTIONS (3)
  - Product use issue [Unknown]
  - Off label use [Unknown]
  - Atrial fibrillation [Unknown]
